FAERS Safety Report 10095974 (Version 1)
Quarter: 2014Q2

REPORT INFORMATION
  Report Type: Spontaneous
  Country: FR (occurrence: None)
  Receive Date: 20140410
  Receipt Date: 20140410
  Transmission Date: 20141212
  Serious: Yes (Hospitalization)
  Sender: FDA-Public Use
  Company Number: 2014-00353

PATIENT
  Age: 58 Year
  Sex: Female

DRUGS (3)
  1. ZOLPIDEM [Suspect]
     Indication: PRODUCT USED FOR UNKNOWN INDICATION
  2. PAROXETINE [Suspect]
     Indication: PRODUCT USED FOR UNKNOWN INDICATION
  3. TRIMEPRAZINE [Suspect]
     Indication: PRODUCT USED FOR UNKNOWN INDICATION

REACTIONS (1)
  - Acute generalised exanthematous pustulosis [None]
